FAERS Safety Report 21786025 (Version 2)
Quarter: 2023Q1

REPORT INFORMATION
  Report Type: Spontaneous
  Country: IT (occurrence: IT)
  Receive Date: 20221228
  Receipt Date: 20230113
  Transmission Date: 20230417
  Serious: Yes (Hospitalization)
  Sender: FDA-Public Use
  Company Number: IT-SUN PHARMACEUTICAL INDUSTRIES LTD-2022RR-370690

PATIENT
  Age: 81 Year
  Sex: Male

DRUGS (2)
  1. CITALOPRAM [Interacting]
     Active Substance: CITALOPRAM HYDROBROMIDE
     Indication: Product used for unknown indication
     Dosage: 12GTT/DAY
     Route: 048
  2. HALOPERIDOL [Interacting]
     Active Substance: HALOPERIDOL
     Indication: Product used for unknown indication
     Dosage: 3 GTT/DAY
     Route: 048

REACTIONS (2)
  - Drug interaction [Recovering/Resolving]
  - Electrocardiogram QT prolonged [Recovering/Resolving]

NARRATIVE: CASE EVENT DATE: 20220816
